FAERS Safety Report 8819144 (Version 2)
Quarter: 2012Q4

REPORT INFORMATION
  Report Type: 
  Country: US (occurrence: US)
  Receive Date: 20121001
  Receipt Date: 20121105
  Transmission Date: 20130627
  Serious: No
  Sender: FDA-Public Use
  Company Number: US-PFIZER INC-2012239763

PATIENT
  Age: 64 Year
  Sex: Female
  Weight: 69.39 kg

DRUGS (8)
  1. TIKOSYN [Suspect]
     Indication: ATRIAL FIBRILLATION
     Dosage: 500 ug, 2x/day
     Route: 048
     Dates: start: 20120901, end: 20120917
  2. COUMADINE [Concomitant]
     Dosage: 5 mg, 1x/day
  3. XANAX [Concomitant]
     Dosage: UNK
  4. SYNTHROID [Concomitant]
     Dosage: 25 ug, 1x/day
  5. CARTIA [Concomitant]
     Dosage: 240 mg, 2x/day
  6. LIPITOR [Concomitant]
     Dosage: 20 mg, 1x/day
  7. SERETIDE [Concomitant]
     Dosage: UNK, 2x/day
  8. TIAZAC [Concomitant]
     Dosage: UNK, 1x/day

REACTIONS (4)
  - Upper respiratory tract infection [Unknown]
  - Weight decreased [Recovering/Resolving]
  - Vomiting [Recovered/Resolved]
  - Drug intolerance [Unknown]
